FAERS Safety Report 8435060-4 (Version None)
Quarter: 2012Q2

REPORT INFORMATION
  Report Type: 
  Country: None (occurrence: None)
  Receive Date: 20120614
  Receipt Date: 20120606
  Transmission Date: 20120825
  Serious: Yes (Hospitalization)
  Sender: FDA-Public Use
  Company Number: PHHO2012GB008669

PATIENT
  Sex: Female

DRUGS (8)
  1. DICLOFENAC SODIUM [Suspect]
     Indication: OSTEOARTHRITIS
     Dosage: 50 MG, TID
     Route: 048
     Dates: start: 20090728, end: 20091009
  2. DICLOFENAC SODIUM [Suspect]
     Dosage: 100 MG, QD
     Route: 048
     Dates: start: 20110428, end: 20110823
  3. ACETAMINOPHEN [Concomitant]
     Dosage: UNK
     Dates: start: 20091009, end: 20091108
  4. MORPHINE [Concomitant]
     Dosage: 5 MG, BID
     Dates: start: 20110727, end: 20110822
  5. LANSOPRAZOLE [Concomitant]
     Dosage: 30 MG, QD
     Dates: start: 20081021, end: 20110823
  6. ACETAMINOPHEN AND CODEINE PHOSPHATE [Concomitant]
     Dosage: UNK
     Dates: start: 20090721, end: 20110823
  7. NITROFURANTOIN [Concomitant]
     Dosage: 50 MG, QID
     Dates: start: 20110907, end: 20110912
  8. HYDROXOCOBALAMIN [Concomitant]
     Dosage: UNK
     Dates: start: 20100225

REACTIONS (1)
  - PULMONARY EMBOLISM [None]
